FAERS Safety Report 5532109-3 (Version None)
Quarter: 2007Q4

REPORT INFORMATION
  Report Type: 
  Country: None (occurrence: None)
  Receive Date: 20071203
  Receipt Date: 20071127
  Transmission Date: 20080405
  Serious: Yes (Other)
  Sender: FDA-Public Use
  Company Number: PHEH2005US13327

PATIENT
  Age: 61 Year
  Sex: Female
  Weight: 59.41 kg

DRUGS (13)
  1. ESTRADERM [Suspect]
     Indication: MENOPAUSE
     Dosage: UNK, UNK
     Route: 062
     Dates: start: 19850101, end: 20011219
  2. CLIMARA [Suspect]
     Indication: MENOPAUSE
     Dosage: UNK, UNK
     Route: 062
     Dates: start: 19961101, end: 19970401
  3. MPA [Suspect]
     Indication: MENOPAUSE
     Dosage: UNK, UNK
     Dates: start: 19850101, end: 19970401
  4. PREMPRO [Suspect]
     Indication: MENOPAUSE
     Dosage: UNK, UNK
     Dates: start: 19970501, end: 20011201
  5. ATENOLOL [Concomitant]
     Indication: CARDIAC DISORDER
  6. PRILOSEC [Concomitant]
  7. CLARITIN [Concomitant]
  8. FLONASE [Concomitant]
  9. DIAZEPAM [Concomitant]
  10. PROVERA [Suspect]
     Indication: MENOPAUSE
     Route: 048
     Dates: start: 19850101, end: 19970401
  11. DILTIAZEM [Concomitant]
  12. CALCIUM [Concomitant]
  13. VALIUM [Concomitant]
     Dosage: UNK, PRN

REACTIONS (33)
  - BENIGN NEOPLASM OF THYROID GLAND [None]
  - BONE DENSITY DECREASED [None]
  - BREAST CANCER [None]
  - BREAST FIBROSIS [None]
  - BREAST HYPERPLASIA [None]
  - BREAST MASS [None]
  - BREAST MICROCALCIFICATION [None]
  - CHRONIC OBSTRUCTIVE PULMONARY DISEASE [None]
  - DYSLIPIDAEMIA [None]
  - DYSPNOEA [None]
  - EMPHYSEMA [None]
  - ENDOMETRIAL ATROPHY [None]
  - FIBROCYSTIC BREAST DISEASE [None]
  - GRANULOMA [None]
  - HEPATIC STEATOSIS [None]
  - HEPATOCELLULAR DAMAGE [None]
  - HYPERPARATHYROIDISM PRIMARY [None]
  - LIMB OPERATION [None]
  - LIVER FUNCTION TEST ABNORMAL [None]
  - MALIGNANT BREAST LUMP REMOVAL [None]
  - OSTEOPOROSIS [None]
  - PAIN [None]
  - PARATHYROID TUMOUR BENIGN [None]
  - PARATHYROIDECTOMY [None]
  - POSTMENOPAUSAL HAEMORRHAGE [None]
  - RADIOTHERAPY [None]
  - RENAL CYST [None]
  - RHINITIS ALLERGIC [None]
  - SPINAL OSTEOARTHRITIS [None]
  - THYROID GLAND SCAN ABNORMAL [None]
  - TRANSIENT ISCHAEMIC ATTACK [None]
  - UTERINE LEIOMYOMA [None]
  - VENTRICULAR EXTRASYSTOLES [None]
